FAERS Safety Report 7903513-0 (Version None)
Quarter: 2011Q4

REPORT INFORMATION
  Report Type: 
  Country: None (occurrence: None)
  Receive Date: 20111107
  Receipt Date: 20111025
  Transmission Date: 20120403
  Serious: Yes (Other)
  Sender: FDA-Public Use
  Company Number: ACO_26652_2011

PATIENT
  Age: 63 Year
  Sex: Female
  Weight: 70.3075 kg

DRUGS (7)
  1. COPAXONE [Concomitant]
  2. DICLOFENAC SODIUM [Concomitant]
  3. MULTIVITAMIN   /00097801/ (ASCORBIC ACID, CALCIUM PANTOTHENATE, EROGOC [Concomitant]
  4. AMPYRA [Suspect]
     Indication: GAIT DISTURBANCE
     Dosage: 10 MG, QD, ORAL    10 MG, BID, ORAL
     Route: 048
     Dates: start: 20110501, end: 20110501
  5. AMPYRA [Suspect]
     Indication: GAIT DISTURBANCE
     Dosage: 10 MG, QD, ORAL    10 MG, BID, ORAL
     Route: 048
     Dates: start: 20110501, end: 20110829
  6. MISOPROSTOL [Concomitant]
  7. CALCIUM CARBONATE [Concomitant]

REACTIONS (4)
  - OPTIC ATROPHY [None]
  - INAPPROPRIATE SCHEDULE OF DRUG ADMINISTRATION [None]
  - DRUG INEFFECTIVE [None]
  - DRY EYE [None]
